FAERS Safety Report 22109977 (Version 8)
Quarter: 2025Q4

REPORT INFORMATION
  Report Type: Spontaneous
  Country: IN (occurrence: IN)
  Receive Date: 20230317
  Receipt Date: 20251201
  Transmission Date: 20260118
  Serious: Yes (Other)
  Sender: PFIZER
  Company Number: IN-PFIZER INC-PV202300048921

PATIENT
  Age: 49 Year
  Sex: Female
  Weight: 64.6 kg

DRUGS (8)
  1. LORLATINIB [Suspect]
     Active Substance: LORLATINIB
     Indication: Non-small cell lung cancer
     Dosage: 100 MG, 1X/DAY
     Route: 048
     Dates: start: 20220905
  2. ZA [Concomitant]
     Dosage: 4MG IV IN 100ML NS IV OVER 20MIN
     Route: 042
  3. LEVERA [LEVETIRACETAM] [Concomitant]
     Dosage: 500 BD
  4. ROSUVASTATIN CALCIUM [Concomitant]
     Active Substance: ROSUVASTATIN CALCIUM
     Dosage: 20 MG, 1X/DAY
     Route: 048
  5. FENOFIBRATE [Concomitant]
     Active Substance: FENOFIBRATE
     Dosage: 160 MG
  6. NARCODOL [Concomitant]
  7. ENCICARB [Concomitant]
     Dosage: 1000 MG IN 100ML NS IV OVER 30
     Route: 042
  8. VITAMIN B12 [Concomitant]
     Active Substance: CYANOCOBALAMIN
     Dosage: 1000MCG IV TODAY
     Route: 042

REACTIONS (23)
  - Type 2 diabetes mellitus [Unknown]
  - Arthritis bacterial [Unknown]
  - Metastases to central nervous system [Unknown]
  - Metastases to liver [Unknown]
  - Metastases to bone [Unknown]
  - Dyslipidaemia [Unknown]
  - Pain [Unknown]
  - Blood pressure increased [Unknown]
  - Heart rate increased [Unknown]
  - Respiratory rate increased [Unknown]
  - Haemoglobin decreased [Unknown]
  - Memory impairment [Not Recovered/Not Resolved]
  - Blood triglycerides increased [Unknown]
  - Abnormal behaviour [Not Recovered/Not Resolved]
  - Anger [Unknown]
  - Stress [Unknown]
  - Insomnia [Unknown]
  - Pain in extremity [Unknown]
  - Arthralgia [Unknown]
  - Back pain [Unknown]
  - Restlessness [Unknown]
  - Mental disorder [Unknown]
  - Hypertension [Unknown]

NARRATIVE: CASE EVENT DATE: 20230418
